FAERS Safety Report 5366454-1 (Version None)
Quarter: 2007Q2

REPORT INFORMATION
  Report Type: 
  Country: None (occurrence: None)
  Receive Date: 20070622
  Receipt Date: 20070619
  Transmission Date: 20071010
  Serious: Yes (Death, Hospitalization)
  Sender: FDA-Public Use
  Company Number: JP-BRISTOL-MYERS SQUIBB COMPANY-13812128

PATIENT
  Age: 66 Year
  Sex: Female

DRUGS (13)
  1. PARAPLATIN [Suspect]
     Indication: UTERINE CANCER
     Route: 041
     Dates: start: 20070601, end: 20070601
  2. TAXOL [Suspect]
     Indication: UTERINE CANCER
     Route: 041
     Dates: start: 20070601, end: 20070601
  3. GASTER [Concomitant]
     Route: 041
     Dates: start: 20070601, end: 20070601
  4. KYTRIL [Concomitant]
     Route: 041
     Dates: start: 20070601, end: 20070601
  5. DEXART [Concomitant]
     Route: 041
     Dates: start: 20070601, end: 20070601
  6. FLOMOXEF SODIUM [Concomitant]
     Dates: start: 20070602
  7. DICLOFENAC SODIUM [Concomitant]
     Dates: start: 20070602
  8. RESTAMIN [Concomitant]
     Route: 048
     Dates: start: 20070601, end: 20070601
  9. ACTOS [Concomitant]
     Route: 048
  10. DAONIL [Concomitant]
     Route: 048
  11. AMLODIN [Concomitant]
     Route: 048
  12. ALMARL [Concomitant]
     Route: 048
  13. DOGMATYL [Concomitant]
     Route: 048

REACTIONS (3)
  - PANCYTOPENIA [None]
  - PNEUMONIA [None]
  - SEPSIS [None]
